FAERS Safety Report 9455955 (Version 2)
Quarter: 2013Q4

REPORT INFORMATION
  Report Type: Report from Study
  Country: GB (occurrence: GB)
  Receive Date: 20130813
  Receipt Date: 20131004
  Transmission Date: 20140711
  Serious: Yes (Death, Hospitalization)
  Sender: FDA-Public Use
  Company Number: GB-ROCHE-1260761

PATIENT
  Age: 91 Year
  Sex: Male

DRUGS (9)
  1. RANIBIZUMAB [Suspect]
     Indication: PRODUCT USED FOR UNKNOWN INDICATION
     Route: 050
  2. RANIBIZUMAB [Suspect]
     Route: 050
     Dates: start: 20120622
  3. ASPIRIN [Concomitant]
  4. BENDROFLUMETHIAZIDE [Concomitant]
  5. ALENDRONIC ACID [Concomitant]
  6. ATENOLOL [Concomitant]
  7. SIMVASTATIN [Concomitant]
  8. ADCAL - D3 [Concomitant]
  9. GOSERELIN [Concomitant]

REACTIONS (3)
  - Bronchopneumonia [Fatal]
  - Cardiac arrest [Fatal]
  - General physical health deterioration [Unknown]
